FAERS Safety Report 8960460 (Version 2)
Quarter: 2013Q2

REPORT INFORMATION
  Report Type: Spontaneous
  Country: CO (occurrence: None)
  Receive Date: 20121203
  Receipt Date: 20130628
  Transmission Date: 20140414
  Serious: Yes (Death, Hospitalization, Other)
  Sender: FDA-Public Use
  Company Number: 2012ST000738

PATIENT
  Age: 67 Month
  Sex: Male

DRUGS (3)
  1. ADAGEN [Suspect]
     Indication: COMBINED IMMUNODEFICIENCY
     Route: 030
  2. GAMMAGLOBULIN [Concomitant]
  3. ANTIMICROBIALS [Concomitant]

REACTIONS (13)
  - Sinusitis [None]
  - Ear infection [None]
  - Diarrhoea [None]
  - Malnutrition [None]
  - Hepatic enzyme increased [None]
  - Blood bilirubin increased [None]
  - Cholangitis sclerosing [None]
  - Bronchitis [None]
  - Bronchospasm [None]
  - Pulmonary mass [None]
  - Septic shock [None]
  - Germ cell cancer [None]
  - Lung neoplasm malignant [None]
